FAERS Safety Report 24696400 (Version 2)
Quarter: 2024Q4

REPORT INFORMATION
  Report Type: Spontaneous
  Country: JP (occurrence: JP)
  Receive Date: 20241204
  Receipt Date: 20241206
  Transmission Date: 20250114
  Serious: Yes (Death, Other)
  Sender: BRISTOL-MYERS SQUIBB COMPANY
  Company Number: JP-TAIHO-2024-005140

PATIENT
  Age: 82 Year
  Sex: Male
  Weight: 67.6 kg

DRUGS (18)
  1. ABRAXANE [Suspect]
     Active Substance: PACLITAXEL
     Indication: Lung adenocarcinoma
     Dosage: 170 MG/DAY, DETAILS NOT REPORTED?DAILY DOSE: 170 MILLIGRAM(S)
     Route: 041
     Dates: start: 20231124, end: 20240318
  2. PARAPLATIN [Suspect]
     Active Substance: CARBOPLATIN
     Indication: Lung adenocarcinoma
     Dosage: 390 MG/DAY, DETAILS NOT REPORTED
     Route: 041
     Dates: start: 20231124, end: 20231124
  3. PARAPLATIN [Suspect]
     Active Substance: CARBOPLATIN
     Dosage: 350 MG/DAY, DETAILS NOT REPORTED?DAILY DOSE: 350 MILLIGRAM(S)
     Route: 041
     Dates: start: 20231222, end: 20240219
  4. LEVOCETIRIZINE HYDROCHLORIDE [Concomitant]
     Active Substance: LEVOCETIRIZINE HYDROCHLORIDE
     Indication: Product used for unknown indication
     Route: 048
  5. HERBALS [Concomitant]
     Active Substance: HERBALS
     Indication: Product used for unknown indication
     Dosage: PRESCRIBED FROM 15/OCT/2018 UNTIL HOSPITALIZATION (PREVIOUSLY PRESCRIBED FROM 2013 TO 2015 WHICH WAS
     Route: 048
  6. EZETIMIBE [Concomitant]
     Active Substance: EZETIMIBE
     Indication: Product used for unknown indication
     Dosage: NI
     Route: 048
  7. PITAVASTATIN CALCIUM KOG [Concomitant]
     Indication: Product used for unknown indication
     Dosage: ALREADY STARTED IN 2013
     Route: 048
     Dates: start: 2013
  8. AMLODIPINE\TELMISARTAN [Concomitant]
     Active Substance: AMLODIPINE\TELMISARTAN
     Indication: Product used for unknown indication
     Route: 048
     Dates: start: 202201
  9. SODIUM FERROUS CITRATE [Concomitant]
     Active Substance: SODIUM FERROUS CITRATE
     Indication: Product used for unknown indication
     Route: 048
  10. CALCIUM POLYSTYRENE SULFONATE [Concomitant]
     Active Substance: CALCIUM POLYSTYRENE SULFONATE
     Indication: Product used for unknown indication
     Route: 048
  11. MAGNESIUM OXIDE MOCHIDA [Concomitant]
     Indication: Product used for unknown indication
     Route: 048
  12. AMITIZA [Concomitant]
     Active Substance: LUBIPROSTONE
     Indication: Product used for unknown indication
     Route: 048
  13. ADETPHOS [Concomitant]
     Active Substance: ADENOSINE TRIPHOSPHATE
     Indication: Product used for unknown indication
     Route: 048
  14. METHYLCOBALAMIN [Concomitant]
     Active Substance: METHYLCOBALAMIN
     Indication: Product used for unknown indication
     Route: 048
  15. VOLTAREN [Concomitant]
     Active Substance: DICLOFENAC SODIUM
     Indication: Product used for unknown indication
     Dosage: UNKNOWN START TIMING DUE TO PRESCRIPTION AT ANOTHER HOSPITAL
     Route: 048
  16. ESOMEPRAZOLE SAWAI [Concomitant]
     Indication: Product used for unknown indication
     Dosage: UNKNOWN START TIMING DUE TO PRESCRIPTION AT ANOTHER HOSPITAL
     Route: 048
  17. PREGABALIN [Concomitant]
     Active Substance: PREGABALIN
     Indication: Product used for unknown indication
     Dosage: UNKNOWN START TIMING DUE TO PRESCRIPTION AT ANOTHER HOSPITAL
     Route: 048
  18. NASONEX [Concomitant]
     Active Substance: MOMETASONE FUROATE
     Indication: Product used for unknown indication
     Dosage: DOSE NOT REPORTED
     Route: 045

REACTIONS (2)
  - Interstitial lung disease [Fatal]
  - Off label use [Unknown]

NARRATIVE: CASE EVENT DATE: 20240325
